FAERS Safety Report 8268236-X (Version None)
Quarter: 2012Q1

REPORT INFORMATION
  Report Type: 
  Country: None (occurrence: None)
  Receive Date: 20120327
  Receipt Date: 20100426
  Transmission Date: 20120608
  Serious: Yes (Other)
  Sender: FDA-Public Use
  Company Number: PHHY2010US24356

PATIENT
  Age: 77 Year
  Sex: Female
  Weight: 49 kg

DRUGS (4)
  1. MULTIVIT (VITAMINS NOS) [Concomitant]
  2. GLEEVEC [Suspect]
     Indication: CHRONIC MYELOID LEUKAEMIA
     Dosage: 100 MG, ORAL
     Route: 048
     Dates: start: 20091001, end: 20091102
  3. POTASSIUM CHLORIDE [Concomitant]
  4. CALCIUM CARBONATE [Concomitant]

REACTIONS (2)
  - OEDEMA PERIPHERAL [None]
  - EYE SWELLING [None]
